FAERS Safety Report 6617771-6 (Version None)
Quarter: 2010Q1

REPORT INFORMATION
  Report Type: 
  Country: None (occurrence: None)
  Receive Date: 20100302
  Receipt Date: 20100219
  Transmission Date: 20100710
  Serious: Yes (Hospitalization)
  Sender: FDA-Public Use
  Company Number: PNT1-2010-00008

PATIENT
  Age: 42 Year
  Sex: Male
  Weight: 90 kg

DRUGS (4)
  1. SPD476 VS PLACEBO (476 (MESALAZINE/MESALAMINE)) TABLET [Suspect]
     Indication: DIVERTICULITIS
     Dosage: 4.8G, 1X/DAY:QD, ORAL
     Route: 048
     Dates: start: 20100208, end: 20100217
  2. TEMAZEPAM (TEMAZAPAM) [Concomitant]
  3. LOVAN (FLUOXETINE HYDROCHLORIDE) [Concomitant]
  4. PANADON (PARACETAMOL) [Concomitant]

REACTIONS (13)
  - ARTHRALGIA [None]
  - BACTERIAL INFECTION [None]
  - CYTOMEGALOVIRUS INFECTION [None]
  - DIARRHOEA [None]
  - EPSTEIN-BARR VIRUS ANTIBODY POSITIVE [None]
  - FOOD INTOLERANCE [None]
  - GASTROENTERITIS VIRAL [None]
  - HYPOTENSION [None]
  - INFLAMMATION [None]
  - MYALGIA [None]
  - OROPHARYNGEAL PAIN [None]
  - PNEUMONIA [None]
  - RHINITIS [None]
